FAERS Safety Report 9321103 (Version 2)
Quarter: 2013Q2

REPORT INFORMATION
  Report Type: Report from Study
  Country: CH (occurrence: CH)
  Receive Date: 20130531
  Receipt Date: 20130610
  Transmission Date: 20140414
  Serious: Yes (Life-Threatening)
  Sender: FDA-Public Use
  Company Number: CH-MILLENNIUM PHARMACEUTICALS, INC.-2013-04133

PATIENT
  Sex: 0

DRUGS (6)
  1. VELCADE [Suspect]
     Indication: PLASMA CELL MYELOMA
     Dosage: 2.1 MG, CYCLIC
     Route: 042
     Dates: start: 20130430, end: 20130521
  2. VELCADE [Suspect]
     Dosage: UNK
     Route: 065
     Dates: start: 20130527
  3. MELPHALAN [Suspect]
     Indication: PLASMA CELL MYELOMA
     Dosage: 14 MG, CYCLIC
     Route: 048
     Dates: start: 20130430, end: 20130503
  4. PREDNISONE [Suspect]
     Indication: PLASMA CELL MYELOMA
     Dosage: 100 MG, UNK
     Route: 048
     Dates: start: 20130430, end: 20130503
  5. SULFAMETHOXAZOLE AND TRIMETHOPRIM [Concomitant]
  6. ZOVIRAX                            /00587301/ [Concomitant]
     Dosage: 500 MG, UNK
     Route: 048

REACTIONS (2)
  - Neutrophil count decreased [Recovered/Resolved]
  - Leukopenia [Recovered/Resolved]
